FAERS Safety Report 10256449 (Version 1)
Quarter: 2014Q2

REPORT INFORMATION
  Report Type: Report from Study
  Country: DE (occurrence: DE)
  Receive Date: 20140624
  Receipt Date: 20140624
  Transmission Date: 20141212
  Serious: Yes (Hospitalization)
  Sender: FDA-Public Use
  Company Number: DE-JNJFOC-20130617063

PATIENT
  Age: 8 Decade
  Sex: Male
  Weight: 76 kg

DRUGS (13)
  1. XARELTO [Suspect]
     Indication: DEEP VEIN THROMBOSIS
     Route: 048
     Dates: start: 20130525
  2. XARELTO [Suspect]
     Indication: DEEP VEIN THROMBOSIS
     Route: 048
     Dates: start: 20130419, end: 20130421
  3. XARELTO [Suspect]
     Indication: DEEP VEIN THROMBOSIS
     Route: 048
     Dates: start: 20130315, end: 20130418
  4. XARELTO [Suspect]
     Indication: THROMBOSIS PROPHYLAXIS
     Route: 048
     Dates: start: 20130315, end: 20130418
  5. XARELTO [Suspect]
     Indication: THROMBOSIS PROPHYLAXIS
     Route: 048
     Dates: start: 20130525
  6. XARELTO [Suspect]
     Indication: THROMBOSIS PROPHYLAXIS
     Route: 048
     Dates: start: 20130419, end: 20130421
  7. BISOPROLOL [Concomitant]
     Route: 065
     Dates: start: 201301
  8. HEPARIN [Concomitant]
     Indication: ANTICOAGULANT THERAPY
     Route: 065
     Dates: start: 20130311, end: 20130315
  9. MYOCHOLINE [Concomitant]
     Route: 065
     Dates: start: 201207
  10. ALLOPURINOL [Concomitant]
     Route: 065
     Dates: start: 201207
  11. NOVALGIN [Concomitant]
     Indication: PAIN MANAGEMENT
     Route: 065
     Dates: start: 20130312
  12. OLMETEC [Concomitant]
     Route: 065
     Dates: start: 201210
  13. LASIX [Concomitant]
     Route: 065
     Dates: start: 201210

REACTIONS (2)
  - Deep vein thrombosis [Recovered/Resolved]
  - Drug ineffective [Unknown]
